FAERS Safety Report 5672630-0 (Version None)
Quarter: 2008Q1

REPORT INFORMATION
  Report Type: 
  Country: None (occurrence: None)
  Receive Date: 20080319
  Receipt Date: 20080311
  Transmission Date: 20080703
  Serious: Yes (Hospitalization, Other)
  Sender: FDA-Public Use
  Company Number: US-MERCK-0803USA01850

PATIENT
  Age: 44 Year
  Sex: Male

DRUGS (9)
  1. FOSAMAX [Suspect]
     Indication: OSTEOPOROSIS
     Route: 048
     Dates: start: 20070501, end: 20080304
  2. ASCORBIC ACID [Concomitant]
     Route: 065
  3. METOPROLOL [Concomitant]
     Route: 065
  4. CRANBERRY [Concomitant]
     Route: 065
  5. CALCIUM (UNSPECIFIED) AND VITAMINS (UNSPECIFIED) [Concomitant]
     Route: 065
  6. MEPRON [Concomitant]
     Route: 065
  7. DITROPAN XL [Concomitant]
     Route: 065
  8. DULCOLAX [Concomitant]
     Route: 065
  9. ANTIVIRAL (UNSPECIFIED) [Suspect]
     Route: 065
     Dates: end: 20071201

REACTIONS (1)
  - THROMBOCYTOPENIA [None]
